FAERS Safety Report 5021372-3 (Version None)
Quarter: 2006Q2

REPORT INFORMATION
  Report Type: 
  Country: None (occurrence: None)
  Receive Date: 20060608
  Receipt Date: 20060414
  Transmission Date: 20061013
  Serious: No
  Sender: FDA-Public Use
  Company Number: US-BRISTOL-MYERS SQUIBB COMPANY-13348552

PATIENT
  Age: 62 Year
  Sex: Female

DRUGS (2)
  1. CARBIDOPA AND LEVODOPA [Suspect]
     Indication: PARKINSON'S DISEASE
     Dosage: DOSE VALUE:  10 MG/100 MG; SHORT TIME IN JUN-2005, THEN AUG-2005 TO 11-APR-2006
     Route: 048
     Dates: start: 20050601, end: 20060411
  2. COMTAN [Concomitant]
     Dates: start: 20051101, end: 20060301

REACTIONS (5)
  - DRUG INEFFECTIVE [None]
  - MUSCULOSKELETAL STIFFNESS [None]
  - PAIN [None]
  - SENSORY DISTURBANCE [None]
  - STOMACH DISCOMFORT [None]
